FAERS Safety Report 23696469 (Version 1)
Quarter: 2024Q2

REPORT INFORMATION
  Report Type: Spontaneous
  Country: FR (occurrence: FR)
  Receive Date: 20240402
  Receipt Date: 20240402
  Transmission Date: 20240716
  Serious: Yes (Hospitalization)
  Sender: FDA-Public Use
  Company Number: None

PATIENT
  Age: 55 Year
  Sex: Female
  Weight: 80 kg

DRUGS (1)
  1. METHOTREXATE [Suspect]
     Active Substance: METHOTREXATE
     Indication: Medication error
     Dates: start: 20240115, end: 202402

REACTIONS (4)
  - Acute kidney injury [Recovered/Resolved]
  - Skin bacterial infection [Recovering/Resolving]
  - Pancytopenia [Recovering/Resolving]
  - Incorrect dosage administered [Recovering/Resolving]

NARRATIVE: CASE EVENT DATE: 20240101
